FAERS Safety Report 5103994-4 (Version None)
Quarter: 2006Q3

REPORT INFORMATION
  Report Type: 
  Country: None (occurrence: None)
  Receive Date: 20060908
  Receipt Date: 20060828
  Transmission Date: 20061208
  Serious: Yes (Hospitalization)
  Sender: FDA-Public Use
  Company Number: 229209

PATIENT
  Age: 12 Year
  Sex: Female
  Weight: 52.9 kg

DRUGS (4)
  1. NUTROPIN AQ [Suspect]
     Indication: DRUG USE FOR UNKNOWN INDICATION
     Dosage: 2.5 MG, SUBCUTANEOUS
     Route: 058
     Dates: start: 19990323
  2. LEVOXYL [Concomitant]
  3. DDAVP (DESMOPRESSIN ACETATE) [Concomitant]
  4. SOLU-CORTEF [Concomitant]

REACTIONS (1)
  - MENINGITIS VIRAL [None]
